FAERS Safety Report 21818657 (Version 1)
Quarter: 2023Q1

REPORT INFORMATION
  Report Type: Spontaneous
  Country: US (occurrence: None)
  Receive Date: 20230104
  Receipt Date: 20230104
  Transmission Date: 20230418
  Serious: Yes (Disabling, Other)
  Sender: FDA-Public Use
  Company Number: None

PATIENT
  Age: 39 Year
  Sex: Male
  Weight: 81 kg

DRUGS (2)
  1. ZYPREXA [Suspect]
     Active Substance: OLANZAPINE
     Indication: Viral infection
     Dates: start: 20200301, end: 20211028
  2. ZYPREXA [Suspect]
     Active Substance: OLANZAPINE
     Indication: Nervous system disorder

REACTIONS (4)
  - Inappropriate schedule of product discontinuation [None]
  - Cognitive disorder [None]
  - Withdrawal syndrome [None]
  - Respiratory arrest [None]

NARRATIVE: CASE EVENT DATE: 20211028
